FAERS Safety Report 17050354 (Version 2)
Quarter: 2020Q1

REPORT INFORMATION
  Report Type: Spontaneous
  Country: FR (occurrence: FR)
  Receive Date: 20191119
  Receipt Date: 20200306
  Transmission Date: 20200409
  Serious: Yes (Hospitalization, Other)
  Sender: FDA-Public Use
  Company Number: FR-PFIZER INC-2019495368

PATIENT
  Age: 68 Year
  Sex: Male
  Weight: 95 kg

DRUGS (18)
  1. LYRICA [Concomitant]
     Active Substance: PREGABALIN
     Indication: PERIPHERAL SENSORY NEUROPATHY
     Dosage: 150 MG, 1X/DAY
     Route: 048
     Dates: start: 20190225
  2. DARATUMUMAB [Suspect]
     Active Substance: DARATUMUMAB
     Indication: PLASMA CELL MYELOMA
     Dosage: 1800 MG, UNK
     Route: 058
     Dates: start: 20180821, end: 20191014
  3. MELPHALAN. [Suspect]
     Active Substance: MELPHALAN
     Indication: PLASMA CELL MYELOMA
     Dosage: 9 MG/M2, UNK; C1
     Route: 048
     Dates: start: 20180821
  4. BORTEZOMIB. [Suspect]
     Active Substance: BORTEZOMIB
     Dosage: 0.7 MG/M2, UNK;  C4-C9
     Route: 058
     Dates: end: 20190812
  5. PARACETAMOL [Concomitant]
     Active Substance: ACETAMINOPHEN
     Indication: NECK PAIN
     Dosage: 1 G, UNK
     Route: 048
     Dates: start: 20180828
  6. CARDENSIEL [Concomitant]
     Active Substance: BISOPROLOL FUMARATE
     Indication: ATRIAL TACHYCARDIA
     Dosage: 2.5 MG, 1X/DAY
     Route: 048
  7. BORTEZOMIB. [Suspect]
     Active Substance: BORTEZOMIB
     Indication: PLASMA CELL MYELOMA
     Dosage: 1.3 MG/M2, UNK; C1-C3
     Route: 058
     Dates: start: 20180821
  8. PREDNISONE. [Suspect]
     Active Substance: PREDNISONE
     Dosage: 60 MG/M2, UNK
     Route: 048
     Dates: start: 20180822, end: 20190808
  9. MELPHALAN. [Suspect]
     Active Substance: MELPHALAN
     Dosage: 4.5 MG/M2, UNK;  C5
     Route: 048
     Dates: end: 20190516
  10. PRIMPERAN [Concomitant]
     Active Substance: METOCLOPRAMIDE HYDROCHLORIDE
     Indication: NAUSEA
     Dosage: 10 MG, UNK
     Route: 048
  11. WELLVONE [Concomitant]
     Active Substance: ATOVAQUONE
     Indication: INFECTION PROPHYLAXIS
     Dosage: 10 ML, 1X/DAY
     Route: 048
     Dates: start: 20190204
  12. ARANESP [Concomitant]
     Active Substance: DARBEPOETIN ALFA
     Indication: ANAEMIA
     Dosage: 300 UG, WEEKLY
     Route: 058
     Dates: start: 20190401
  13. ELUDRIL (CHLORHEXIDINE GLUCONATE) [Concomitant]
     Active Substance: CHLORHEXIDINE GLUCONATE
     Indication: MUCOSITIS MANAGEMENT
     Dosage: 3 DF, 1X/DAY
     Route: 061
     Dates: start: 20180918
  14. ALLOPURINOL. [Concomitant]
     Active Substance: ALLOPURINOL
     Indication: PROPHYLAXIS
     Dosage: 200 MG, 1X/DAY
     Route: 048
     Dates: start: 20180918
  15. SODIUM BICARBONATE. [Concomitant]
     Active Substance: SODIUM BICARBONATE
     Indication: MUCOSITIS MANAGEMENT
     Dosage: 3 UNK, DAILY
     Route: 048
     Dates: start: 20180918
  16. REPAGLINIDE. [Concomitant]
     Active Substance: REPAGLINIDE
     Indication: TYPE 2 DIABETES MELLITUS
     Dosage: 10 MG, 1X/DAY
     Route: 048
     Dates: start: 20190204
  17. MELPHALAN. [Suspect]
     Active Substance: MELPHALAN
     Dosage: 6.75 MG/M2, UNK; C2-4
     Route: 048
  18. AMIODARONE [Concomitant]
     Active Substance: AMIODARONE
     Indication: ATRIAL TACHYCARDIA
     Dosage: 200 MG, 1X/DAY
     Route: 048
     Dates: start: 20181002

REACTIONS (1)
  - Diverticulitis [Recovered/Resolved with Sequelae]

NARRATIVE: CASE EVENT DATE: 20190810
